FAERS Safety Report 9757735 (Version 1)
Quarter: 2013Q4

REPORT INFORMATION
  Report Type: Report from Study
  Country: DE (occurrence: DE)
  Receive Date: 20131216
  Receipt Date: 20131216
  Transmission Date: 20140711
  Serious: Yes (Hospitalization)
  Sender: FDA-Public Use
  Company Number: DE-ROCHE-1316489

PATIENT
  Age: 2 Year
  Sex: Male
  Weight: 11.8 kg

DRUGS (26)
  1. VALGANCICLOVIR [Suspect]
     Indication: PROPHYLACTIC CHEMOTHERAPY
     Route: 048
     Dates: start: 20090815
  2. MYCOPHENOLATE MOFETIL [Suspect]
     Indication: PRODUCT USED FOR UNKNOWN INDICATION
     Route: 048
     Dates: start: 20090815
  3. TACROLIMUS [Suspect]
     Indication: PRODUCT USED FOR UNKNOWN INDICATION
     Route: 048
     Dates: start: 20090815
  4. TACROLIMUS [Suspect]
     Route: 048
  5. TACROLIMUS [Suspect]
     Route: 048
  6. METHYL PREDNISOLONE SODIUM SUCCINATE [Suspect]
     Indication: PROPHYLAXIS AGAINST TRANSPLANT REJECTION
     Route: 048
     Dates: start: 20090815
  7. METHYL PREDNISOLONE SODIUM SUCCINATE [Suspect]
     Route: 048
  8. METHYL PREDNISOLONE SODIUM SUCCINATE [Suspect]
     Route: 048
  9. ROCALTROL [Concomitant]
     Route: 048
     Dates: start: 20100607
  10. GANCICLOVIR SODIUM [Concomitant]
     Route: 042
     Dates: start: 20100122
  11. NEORECORMON [Concomitant]
     Route: 065
     Dates: start: 20091110
  12. NEORECORMON [Concomitant]
     Route: 065
  13. KEPINOL [Concomitant]
     Indication: PROPHYLACTIC CHEMOTHERAPY
     Route: 048
     Dates: start: 20090815
  14. KEPINOL [Concomitant]
     Route: 048
     Dates: start: 20100607
  15. CYTOTECT [Concomitant]
     Indication: PROPHYLACTIC CHEMOTHERAPY
     Route: 042
     Dates: start: 20090815
  16. MAGNESIUM VERLA TABLETS (GERMANY) [Concomitant]
     Route: 048
     Dates: start: 20090822
  17. DIFLUCAN [Concomitant]
     Indication: PROPHYLACTIC CHEMOTHERAPY
     Route: 048
     Dates: start: 20090825
  18. SODIUM BICARBONATE [Concomitant]
     Route: 048
     Dates: start: 20090910
  19. SODIUM BICARBONATE [Concomitant]
     Route: 048
  20. SODIUM BICARBONATE [Concomitant]
     Route: 048
  21. VIGANTOLETTEN [Concomitant]
     Indication: HYPERPARATHYROIDISM SECONDARY
     Route: 048
     Dates: start: 20100420
  22. VIGANTOLETTEN [Concomitant]
     Route: 048
  23. CERTICAN [Concomitant]
     Route: 048
     Dates: start: 20100520
  24. FERLECIT [Concomitant]
     Indication: NEPHROGENIC ANAEMIA
     Route: 048
     Dates: start: 20100920
  25. MODIGRAF [Concomitant]
     Indication: INFECTION
     Route: 048
     Dates: start: 20090815
  26. MODIGRAF [Concomitant]
     Route: 048

REACTIONS (6)
  - Catheter removal [Recovered/Resolved]
  - Pyelonephritis [Recovered/Resolved]
  - Infection [Unknown]
  - Cytomegalovirus infection [Unknown]
  - Transplant rejection [Unknown]
  - Polyomavirus-associated nephropathy [Unknown]
